FAERS Safety Report 21643335 (Version 1)
Quarter: 2022Q4

REPORT INFORMATION
  Report Type: Spontaneous
  Country: US (occurrence: US)
  Receive Date: 20221125
  Receipt Date: 20221125
  Transmission Date: 20230113
  Serious: No
  Sender: FDA-Public Use
  Company Number: US-VERTEX PHARMACEUTICALS-2022-004118

PATIENT
  Age: 14 Year
  Sex: Female
  Weight: 49 kg

DRUGS (9)
  1. TRIKAFTA [Suspect]
     Active Substance: ELEXACAFTOR\IVACAFTOR\TEZACAFTOR
     Indication: Cystic fibrosis
     Dosage: 2 ORANGE TABS IN AM; 1 BLUE TAB IN PM
     Route: 048
     Dates: start: 20191106
  2. PULMOZYME [Concomitant]
     Active Substance: DORNASE ALFA
  3. IRON [Concomitant]
     Active Substance: IRON
  4. SODIUM CHLORIDE [Concomitant]
     Active Substance: SODIUM CHLORIDE
  5. PREVACID [Concomitant]
     Active Substance: LANSOPRAZOLE
  6. PERTZYE [Concomitant]
     Active Substance: PANCRELIPASE AMYLASE\PANCRELIPASE LIPASE\PANCRELIPASE PROTEASE
  7. FLONASE [Concomitant]
     Active Substance: FLUTICASONE PROPIONATE
  8. ZYRTEC [Concomitant]
     Active Substance: CETIRIZINE HYDROCHLORIDE
  9. SYMBICORT [Concomitant]
     Active Substance: BUDESONIDE\FORMOTEROL FUMARATE DIHYDRATE

REACTIONS (9)
  - Blepharitis [Not Recovered/Not Resolved]
  - Insomnia [Not Recovered/Not Resolved]
  - Hordeolum [Not Recovered/Not Resolved]
  - Mood altered [Not Recovered/Not Resolved]
  - Irritability [Unknown]
  - Feeling abnormal [Unknown]
  - Memory impairment [Unknown]
  - Depression [Unknown]
  - Chalazion [Not Recovered/Not Resolved]

NARRATIVE: CASE EVENT DATE: 20191101
